FAERS Safety Report 19209236 (Version 1)
Quarter: 2021Q2

REPORT INFORMATION
  Report Type: Report from Study
  Country: None (occurrence: BE)
  Receive Date: 20210504
  Receipt Date: 20210504
  Transmission Date: 20210717
  Serious: Yes (Hospitalization)
  Sender: FDA-Public Use
  Company Number: BE-ABBVIE-20K-013-3302766-00

PATIENT
  Age: 69 Year
  Sex: Female
  Weight: 68 kg

DRUGS (23)
  1. DUODOPA [Suspect]
     Active Substance: CARBIDOPA\LEVODOPA
     Dosage: MD= 5.0 ML, CD= 3.5 ML/HR DURING 16HRS, ED= 2ML
     Route: 050
     Dates: start: 20210112, end: 20210114
  2. DUODOPA [Suspect]
     Active Substance: CARBIDOPA\LEVODOPA
     Dosage: MD= 7.0 ML, CD= 3.8 ML/HR DURING 16HRS, ED= 2.5 ML
     Route: 050
     Dates: start: 20210114, end: 20210119
  3. DUODOPA [Suspect]
     Active Substance: CARBIDOPA\LEVODOPA
     Indication: PARKINSON^S DISEASE
     Dosage: DOSAGES UNKNOWN
     Route: 050
     Dates: start: 20200218, end: 20200219
  4. DUODOPA [Suspect]
     Active Substance: CARBIDOPA\LEVODOPA
     Dosage: MD=10ML, CD=3.5ML/HR DURING 16HRS, ED=2.0ML
     Route: 050
     Dates: start: 20200227, end: 20200303
  5. DUODOPA [Suspect]
     Active Substance: CARBIDOPA\LEVODOPA
     Dosage: MD=11ML, CD=3.5ML/HOUR DURING 16HRS, ED=2.0ML
     Route: 050
     Dates: start: 20200409, end: 20200430
  6. DUODOPA [Suspect]
     Active Substance: CARBIDOPA\LEVODOPA
     Dosage: MD= 11.0 ML, CD= 3.8 ML/HR DURING 16HRS, ED= 2.5 ML
     Route: 050
     Dates: start: 20200916, end: 20201013
  7. DUODOPA [Suspect]
     Active Substance: CARBIDOPA\LEVODOPA
     Dosage: MD= 5.0 ML, CD= 3.2 ML/HR DURING 16HRS, ED= 2.5 ML
     Route: 050
     Dates: start: 20201208, end: 20210104
  8. DUODOPA [Suspect]
     Active Substance: CARBIDOPA\LEVODOPA
     Route: 050
     Dates: start: 20210310, end: 20210407
  9. DUODOPA [Suspect]
     Active Substance: CARBIDOPA\LEVODOPA
     Dosage: MD=11ML, CD=3.5ML/HOUR DURING 16HRS, ED=2.0ML
     Route: 050
     Dates: start: 20200403, end: 202004
  10. DUODOPA [Suspect]
     Active Substance: CARBIDOPA\LEVODOPA
     Dosage: MD=11ML, CD=3.6ML/HOUR DURING 16HRS, ED=2.5ML
     Route: 050
     Dates: start: 20200430, end: 20200515
  11. DUODOPA [Suspect]
     Active Substance: CARBIDOPA\LEVODOPA
     Dosage: MD=11ML, CD=3.5ML/HR DURING 16HRS, ED=2.5ML
     Route: 050
     Dates: start: 20200515, end: 20200529
  12. DUODOPA [Suspect]
     Active Substance: CARBIDOPA\LEVODOPA
     Dosage: MD= 3.0 ML, CD= 3.0 ML/HR DURING 16HRS, ED= 2.5 ML
     Route: 050
     Dates: start: 20201201, end: 20201208
  13. DUODOPA [Suspect]
     Active Substance: CARBIDOPA\LEVODOPA
     Dosage: MD= 8.0 ML, CD= 3.8 ML/HR DURING 16HRS, ED= 2.5 ML
     Route: 050
     Dates: start: 20210119, end: 202103
  14. DUODOPA [Suspect]
     Active Substance: CARBIDOPA\LEVODOPA
     Dosage: MD 5 ML, CD 3.9 ML/H, ED 2.5 ML, REMAINS AT 16 HRS
     Route: 050
     Dates: start: 20210407, end: 20210420
  15. DUODOPA [Suspect]
     Active Substance: CARBIDOPA\LEVODOPA
     Dosage: MD 8.0 ML, CD 3.9 ML/H, ED 2.5 ML, REMAINS AT 16 HRS
     Route: 050
     Dates: start: 20210420
  16. PROLOPA HBS 125 [Concomitant]
     Indication: PRODUCT USED FOR UNKNOWN INDICATION
  17. DUODOPA [Suspect]
     Active Substance: CARBIDOPA\LEVODOPA
     Dosage: MD=11ML, CD=3.7ML/HR DURING 16HRS, ED=2.0ML
     Route: 050
     Dates: start: 20200303, end: 20200403
  18. DUODOPA [Suspect]
     Active Substance: CARBIDOPA\LEVODOPA
     Dosage: MD= 11.0 ML, CD= 3.4 ML/HR DURING 16HRS, ED= 2.5 ML
     Route: 050
     Dates: start: 20201013, end: 2020
  19. DUODOPA [Suspect]
     Active Substance: CARBIDOPA\LEVODOPA
     Dosage: MD=10ML, CD=3.3ML/HR DURING 16HRS, ED=2.0ML
     Route: 050
     Dates: start: 20200219, end: 20200227
  20. DUODOPA [Suspect]
     Active Substance: CARBIDOPA\LEVODOPA
     Dosage: MD= 10.0 ML, CD= 3.9 ML/HR DURING 16HRS, ED= 2.5 ML
     Route: 050
     Dates: start: 20200908, end: 20200916
  21. DUODOPA [Suspect]
     Active Substance: CARBIDOPA\LEVODOPA
     Dosage: MD=11ML, CD=3.6ML/HR DURING 16HRS, ED=2.5ML
     Route: 050
     Dates: start: 20200529, end: 20200908
  22. DUODOPA [Suspect]
     Active Substance: CARBIDOPA\LEVODOPA
     Dosage: MD= 7.0 ML, CD= 3.8 ML/HR DURING 16HRS, ED= 2.5 ML
     Route: 050
     Dates: start: 20210104, end: 20210112
  23. PROLOPA 125 DISP [Concomitant]
     Active Substance: BENSERAZIDE HYDROCHLORIDE\LEVODOPA
     Indication: PRODUCT USED FOR UNKNOWN INDICATION

REACTIONS (25)
  - Gait disturbance [Not Recovered/Not Resolved]
  - Decreased appetite [Not Recovered/Not Resolved]
  - Freezing phenomenon [Recovering/Resolving]
  - Stoma site discharge [Unknown]
  - Insomnia [Not Recovered/Not Resolved]
  - Depression [Unknown]
  - Malaise [Unknown]
  - Transfusion [Unknown]
  - Fall [Recovered/Resolved]
  - Enteral nutrition [Unknown]
  - Asthenia [Unknown]
  - Therapeutic product effect incomplete [Not Recovered/Not Resolved]
  - Mobility decreased [Not Recovered/Not Resolved]
  - Parkinsonian gait [Unknown]
  - Asthenia [Unknown]
  - Fatigue [Unknown]
  - Orthostatic hypotension [Recovering/Resolving]
  - Bradykinesia [Not Recovered/Not Resolved]
  - Dyskinesia [Not Recovered/Not Resolved]
  - Muscle rigidity [Unknown]
  - Anaemia [Unknown]
  - Wrist fracture [Unknown]
  - Weight decreased [Unknown]
  - Device dislocation [Unknown]
  - Weight decreased [Unknown]

NARRATIVE: CASE EVENT DATE: 2020
